FAERS Safety Report 18322137 (Version 3)
Quarter: 2020Q4

REPORT INFORMATION
  Report Type: Report from Study
  Country: BR (occurrence: BR)
  Receive Date: 20200929
  Receipt Date: 20201015
  Transmission Date: 20210113
  Serious: Yes (Death, Other)
  Sender: FDA-Public Use
  Company Number: NVSC2020BR261608

PATIENT
  Age: 73 Year
  Sex: Female

DRUGS (6)
  1. KISQALI [Suspect]
     Active Substance: RIBOCICLIB
     Dosage: 2 DF
     Route: 065
  2. KISQALI [Suspect]
     Active Substance: RIBOCICLIB
     Dosage: 3 DF
     Route: 065
  3. KISQALI [Suspect]
     Active Substance: RIBOCICLIB
     Dosage: UNK UNK, QD (1 PER DAY)
     Route: 065
  4. KISQALI [Suspect]
     Active Substance: RIBOCICLIB
     Dosage: 1 DF
     Route: 065
  5. KISQALI [Suspect]
     Active Substance: RIBOCICLIB
     Indication: BREAST CANCER FEMALE
     Dosage: 3 DF
     Route: 065
     Dates: start: 20200902, end: 20200903
  6. KISQALI [Suspect]
     Active Substance: RIBOCICLIB
     Dosage: UNK (APPROXIMATELY ON 27 AUG 2020)
     Route: 065

REACTIONS (12)
  - Dysphagia [Recovered/Resolved]
  - Speech disorder [Recovered/Resolved]
  - Multiple organ dysfunction syndrome [Fatal]
  - Tremor [Recovered/Resolved]
  - Hypertension [Fatal]
  - Dysarthria [Recovered/Resolved]
  - Communication disorder [Recovered/Resolved]
  - Platelet count decreased [Not Recovered/Not Resolved]
  - Fatigue [Recovered/Resolved]
  - Diabetes mellitus [Fatal]
  - Confusional state [Recovering/Resolving]
  - Eye disorder [Recovered/Resolved]

NARRATIVE: CASE EVENT DATE: 20200902
